FAERS Safety Report 19247420 (Version 7)
Quarter: 2021Q4

REPORT INFORMATION
  Report Type: Spontaneous
  Country: US (occurrence: US)
  Receive Date: 20210512
  Receipt Date: 20211004
  Transmission Date: 20220303
  Serious: Yes (Hospitalization, Other)
  Sender: FDA-Public Use
  Company Number: US-GLAXOSMITHKLINE-US2021100118

PATIENT
  Age: 54 Year
  Sex: Female

DRUGS (5)
  1. ZEJULA [Suspect]
     Active Substance: NIRAPARIB
     Indication: Ovarian cancer
     Dosage: 300 MG, QD
     Route: 048
     Dates: start: 20210413
  2. ZEJULA [Suspect]
     Active Substance: NIRAPARIB
     Dosage: 300 MG, QD
     Route: 048
  3. ZEJULA [Suspect]
     Active Substance: NIRAPARIB
     Dosage: 200 MG, QD
     Route: 048
  4. ZEJULA [Suspect]
     Active Substance: NIRAPARIB
     Dosage: 100 MG, QD
     Route: 048
  5. ZEJULA [Suspect]
     Active Substance: NIRAPARIB
     Dosage: 200 MG, QD
     Route: 048
     Dates: end: 202109

REACTIONS (17)
  - Muscular weakness [Recovering/Resolving]
  - Intracranial mass [Unknown]
  - Pneumonia [Unknown]
  - Swelling face [Unknown]
  - Diplopia [Unknown]
  - Blood magnesium decreased [Unknown]
  - Dyspnoea [Not Recovered/Not Resolved]
  - Brain oedema [Unknown]
  - Spinal fracture [Not Recovered/Not Resolved]
  - Insomnia [Unknown]
  - Back pain [Unknown]
  - Fatigue [Unknown]
  - Dizziness [Unknown]
  - Pain in extremity [Unknown]
  - Tumour marker increased [Unknown]
  - Blood cholesterol increased [Unknown]
  - Haemoglobin decreased [Unknown]

NARRATIVE: CASE EVENT DATE: 20210901
